FAERS Safety Report 8447031-2 (Version None)
Quarter: 2012Q2

REPORT INFORMATION
  Report Type: 
  Country: None (occurrence: None)
  Receive Date: 20120612
  Receipt Date: 20120608
  Transmission Date: 20120825
  Serious: Yes (Death, Disabling)
  Sender: FDA-Public Use
  Company Number: 2011SP025468

PATIENT
  Age: 69 Year
  Sex: Male
  Weight: 69 kg

DRUGS (11)
  1. ZOFRAN (ONDANSETRON HYDROCHLORIDE HYDRATE) [Concomitant]
  2. RAMELTEON [Concomitant]
  3. ZOFRAN (ONDANSETRON HYDROCHLORIDE HYDRATE) [Concomitant]
  4. ADALAT CC [Concomitant]
  5. TEMODAL [Suspect]
     Indication: OLIGODENDROGLIOMA
     Dosage: 75 MG/M2; QD; PO, 150 MG/M2; QD; PO, 200 MG/M2; QD/ PO
     Route: 048
     Dates: start: 20070202, end: 20090919
  6. TEMODAL [Suspect]
     Indication: OLIGODENDROGLIOMA
     Dosage: 75 MG/M2; QD; PO, 150 MG/M2; QD; PO, 200 MG/M2; QD/ PO
     Route: 048
     Dates: start: 20061020, end: 20061128
  7. TEMODAL [Suspect]
     Indication: OLIGODENDROGLIOMA
     Dosage: 75 MG/M2; QD; PO, 150 MG/M2; QD; PO, 200 MG/M2; QD/ PO
     Route: 048
     Dates: start: 20070105, end: 20070109
  8. DEPAKENE [Concomitant]
  9. CEROCRAL [Concomitant]
  10. OMEPRAZOLE [Concomitant]
  11. LOXONIN (LOXOPROFEN SODIUM HYDRATE [Concomitant]

REACTIONS (3)
  - CEREBRAL INFARCTION [None]
  - CARDIAC FAILURE [None]
  - CONGESTIVE CARDIOMYOPATHY [None]
